FAERS Safety Report 6347754-5 (Version None)
Quarter: 2009Q3

REPORT INFORMATION
  Report Type: 
  Country: None (occurrence: None)
  Receive Date: 20090910
  Receipt Date: 20090904
  Transmission Date: 20100115
  Serious: Yes (Death, Hospitalization)
  Sender: FDA-Public Use
  Company Number: A0801351A

PATIENT
  Age: 47 Year
  Sex: Female

DRUGS (10)
  1. TYKERB [Suspect]
     Indication: BREAST CANCER
     Dosage: 5TAB PER DAY
     Route: 048
     Dates: start: 20090804, end: 20090807
  2. COUMADIN [Concomitant]
  3. LASIX [Concomitant]
  4. POTASSIUM CHLORIDE [Concomitant]
  5. OSCAL [Concomitant]
  6. OXYCONTIN [Concomitant]
  7. VICOPROFEN [Concomitant]
  8. PREVACID [Concomitant]
  9. DILTIAZEM [Concomitant]
  10. PENICILLIN [Concomitant]

REACTIONS (6)
  - ADVERSE EVENT [None]
  - DEATH [None]
  - DIARRHOEA [None]
  - NAUSEA [None]
  - PYREXIA [None]
  - VOMITING [None]
